FAERS Safety Report 19495276 (Version 1)
Quarter: 2021Q3

REPORT INFORMATION
  Report Type: Spontaneous
  Country: US (occurrence: US)
  Receive Date: 20210706
  Receipt Date: 20210706
  Transmission Date: 20211014
  Serious: No
  Sender: FDA-Public Use
  Company Number: US-CIPLA LTD.-2021US03657

PATIENT

DRUGS (1)
  1. DIMETHYL FUMARATE [Suspect]
     Active Substance: DIMETHYL FUMARATE
     Indication: PRODUCT USED FOR UNKNOWN INDICATION
     Dosage: UNK
     Route: 065

REACTIONS (11)
  - Mood altered [Unknown]
  - Tinnitus [Unknown]
  - Tremor [Unknown]
  - Ataxia [Unknown]
  - Electric shock sensation [Unknown]
  - Memory impairment [Unknown]
  - Illness [Unknown]
  - Gait spastic [Unknown]
  - Fall [Unknown]
  - Pain [Unknown]
  - Feeling abnormal [Unknown]
